FAERS Safety Report 12923084 (Version 1)
Quarter: 2016Q4

REPORT INFORMATION
  Report Type: Report from Study
  Country: JP (occurrence: JP)
  Receive Date: 20161109
  Receipt Date: 20161109
  Transmission Date: 20170207
  Serious: Yes (Life-Threatening)
  Sender: FDA-Public Use
  Company Number: JP-AMGEN-JPNCT2016157725

PATIENT
  Age: 74 Year
  Sex: Male

DRUGS (8)
  1. FEBURIC [Concomitant]
     Active Substance: FEBUXOSTAT
     Indication: HYPERURICAEMIA
     Dosage: 20 MG, UNK
     Route: 048
  2. GENINAX [Concomitant]
     Active Substance: GARENOXACIN MESYLATE
     Dosage: 200 MG, UNK
     Route: 048
     Dates: start: 20151124
  3. ITRIZOLE [Concomitant]
     Active Substance: ITRACONAZOLE
     Dosage: 100 MG, UNK
     Route: 048
     Dates: start: 20151201
  4. DARBEPOETIN ALFA [Suspect]
     Active Substance: DARBEPOETIN ALFA
     Indication: MYELODYSPLASTIC SYNDROME
     Dosage: 240 MUG, QWK
     Route: 058
     Dates: start: 20150924, end: 20151105
  5. VIDAZA [Concomitant]
     Active Substance: AZACITIDINE
     Indication: MYELODYSPLASTIC SYNDROME
     Dosage: 110 MG, UNK
     Route: 041
     Dates: start: 20151109, end: 20160812
  6. AMLODIN [Concomitant]
     Active Substance: AMLODIPINE BESYLATE
     Indication: HYPERTENSION
     Dosage: 2.5 MG, UNK
     Route: 048
  7. METHYCOBAL [Concomitant]
     Active Substance: METHYLCOBALAMIN
     Indication: HYPOAESTHESIA
     Dosage: 1500 MUG, UNK
     Route: 048
  8. INDERAL [Concomitant]
     Active Substance: PROPRANOLOL HYDROCHLORIDE
     Indication: TREMOR
     Dosage: 40 MG, UNK
     Route: 048

REACTIONS (1)
  - Acute myeloid leukaemia [Recovered/Resolved]

NARRATIVE: CASE EVENT DATE: 20151105
